FAERS Safety Report 8128964-3 (Version None)
Quarter: 2012Q1

REPORT INFORMATION
  Report Type: 
  Country: None (occurrence: None)
  Receive Date: 20120210
  Receipt Date: 20111221
  Transmission Date: 20120608
  Serious: No
  Sender: FDA-Public Use
  Company Number: US-BRISTOL-MYERS SQUIBB COMPANY-15876469

PATIENT
  Age: 48 Year
  Sex: Female

DRUGS (1)
  1. ORENCIA [Suspect]
     Indication: RHEUMATOID ARTHRITIS
     Dosage: NO OF INF:3 VAIL.LAST DOSE JUL2011,SEP2011.
     Route: 042
     Dates: end: 20110901

REACTIONS (7)
  - HEADACHE [None]
  - SINUSITIS [None]
  - GASTRIC INFECTION [None]
  - NAUSEA [None]
  - FATIGUE [None]
  - SOMNOLENCE [None]
  - RASH [None]
